FAERS Safety Report 17359459 (Version 1)
Quarter: 2020Q1

REPORT INFORMATION
  Report Type: Spontaneous
  Country: IT (occurrence: IT)
  Receive Date: 20200203
  Receipt Date: 20200203
  Transmission Date: 20200409
  Serious: Yes (Other)
  Sender: FDA-Public Use
  Company Number: IT-SA-2020SA021811

PATIENT
  Age: 75 Year
  Sex: Female

DRUGS (7)
  1. ARAVA [Suspect]
     Active Substance: LEFLUNOMIDE
     Indication: ARTHRITIS
     Dosage: 20 MG, QD
     Route: 048
     Dates: start: 20130101, end: 20190412
  2. CARDIRENE [Concomitant]
     Active Substance: ASPIRIN DL-LYSINE
  3. TOCILIZUMAB. [Suspect]
     Active Substance: TOCILIZUMAB
     Indication: RHEUMATOID ARTHRITIS
     Dosage: 480 MG
     Route: 042
     Dates: start: 20110101, end: 20191216
  4. COTAREG [Concomitant]
     Active Substance: HYDROCHLOROTHIAZIDE\VALSARTAN
  5. DIBASE [Concomitant]
     Active Substance: CHOLECALCIFEROL
  6. LANSOX [Concomitant]
     Active Substance: LANSOPRAZOLE
  7. PREDNISONE. [Concomitant]
     Active Substance: PREDNISONE

REACTIONS (1)
  - Adenocarcinoma gastric [Not Recovered/Not Resolved]

NARRATIVE: CASE EVENT DATE: 20191216
